FAERS Safety Report 9044650 (Version 1)
Quarter: 2013Q1

REPORT INFORMATION
  Report Type: Spontaneous
  Country: CA (occurrence: US)
  Receive Date: 20130130
  Receipt Date: 20130130
  Transmission Date: 20140127
  Serious: Yes (Death)
  Sender: FDA-Public Use
  Company Number: CA-OTSUKA-US-2013-10143

PATIENT
  Sex: 0

DRUGS (24)
  1. BUSULFEX [Suspect]
     Dosage: 3.2 MG/KG, DAILY DOSE
     Route: 065
  2. BUSULFEX [Suspect]
     Dosage: UNK
  3. ALENDRONATE [Concomitant]
  4. ASPARAGINASE [Suspect]
  5. BACTRIM [Concomitant]
  6. CALCIUM + VITAMIN D [Concomitant]
  7. CYCLOPHOSPHAMIDE [Suspect]
  8. CYCLOSPORINE [Concomitant]
  9. CYTARABINE [Suspect]
  10. DEXAMETHASONE [Suspect]
  11. DOXORUBICIN HYDROCHLORIDE [Suspect]
  12. FLUCONAZOLE [Concomitant]
  13. FLUDARABINE [Suspect]
  14. GLEEVEC [Suspect]
  15. HYDROCORTISONE [Suspect]
  16. LEUCOVORIN [Suspect]
  17. MABCAMPATH [Concomitant]
  18. METHOTREXATE [Suspect]
  19. RISEDRONATE SODIUM [Concomitant]
  20. VINCRISTINE SULFATE SYNTHELABO [Suspect]
  21. MERCAPTOPURINE [Suspect]
  22. METHOTREXATE [Concomitant]
  23. PENTAMIDINE ISETHIONATE [Concomitant]
  24. PREDNISONE [Suspect]

REACTIONS (1)
  - Death [Fatal]
